FAERS Safety Report 7163258-4 (Version None)
Quarter: 2010Q4

REPORT INFORMATION
  Report Type: 
  Country: None (occurrence: None)
  Receive Date: 20101215
  Receipt Date: 20101208
  Transmission Date: 20110411
  Serious: Yes (Hospitalization)
  Sender: FDA-Public Use
  Company Number: BR-US-EMD SERONO, INC.-7031390

PATIENT
  Sex: Female

DRUGS (7)
  1. REBIF [Suspect]
     Indication: SECONDARY PROGRESSIVE MULTIPLE SCLEROSIS
     Dates: start: 20100601
  2. MANTIDAN [Concomitant]
  3. FLUOXETINE [Concomitant]
  4. PAMELOR [Concomitant]
  5. TRAMAL [Concomitant]
     Indication: PAIN
  6. VIOCIL [Concomitant]
  7. DIAZEPAM [Concomitant]

REACTIONS (3)
  - MONOPLEGIA [None]
  - URINARY TRACT INFECTION [None]
  - VISION BLURRED [None]
